FAERS Safety Report 13730055 (Version 1)
Quarter: 2017Q3

REPORT INFORMATION
  Report Type: Report from Study
  Country: FR (occurrence: FR)
  Receive Date: 20170707
  Receipt Date: 20170707
  Transmission Date: 20171127
  Serious: Yes (Death, Other)
  Sender: FDA-Public Use
  Company Number: FR-MYLANLABS-2017M1040280

PATIENT

DRUGS (1)
  1. CAPECITABINE. [Suspect]
     Active Substance: CAPECITABINE
     Indication: BREAST CANCER
     Dosage: 1530MG/M2/DAY: MEAN CAPECITABINE DOSE INTENSITY AT CYCLE1
     Route: 048

REACTIONS (5)
  - Renal failure [Unknown]
  - Diarrhoea [Unknown]
  - Hypovolaemic shock [Unknown]
  - Dyspnoea [Fatal]
  - Thrombocytopenia [Unknown]
